FAERS Safety Report 14138875 (Version 3)
Quarter: 2019Q1

REPORT INFORMATION
  Report Type: Report from Study
  Country: US (occurrence: US)
  Receive Date: 20171027
  Receipt Date: 20190313
  Transmission Date: 20190417
  Serious: Yes (Other)
  Sender: FDA-Public Use
  Company Number: PHHY2017US155946

PATIENT
  Age: 59 Year
  Sex: Male

DRUGS (2)
  1. GILENYA [Suspect]
     Active Substance: FINGOLIMOD HYDROCHLORIDE
     Indication: MULTIPLE SCLEROSIS
     Dosage: UNK UNK, QD
     Route: 048
  2. ADDERALL [Concomitant]
     Active Substance: AMPHETAMINE ASPARTATE\AMPHETAMINE SULFATE\DEXTROAMPHETAMINE SACCHARATE\DEXTROAMPHETAMINE SULFATE
     Indication: FATIGUE
     Dosage: UNK
     Route: 065
     Dates: start: 20170919

REACTIONS (37)
  - Temperature intolerance [Unknown]
  - Dysarthria [Unknown]
  - Arthralgia [Unknown]
  - Erectile dysfunction [Unknown]
  - Irritability [Unknown]
  - Muscle spasms [Unknown]
  - Romberg test positive [Unknown]
  - Aphasia [Unknown]
  - Nausea [Unknown]
  - Decreased vibratory sense [Unknown]
  - Fibromyalgia [Unknown]
  - Haemorrhoids [Unknown]
  - Decreased appetite [Unknown]
  - Musculoskeletal stiffness [Unknown]
  - Photosensitivity reaction [Unknown]
  - Pollakiuria [Unknown]
  - Vertigo [Unknown]
  - JC polyomavirus test positive [Unknown]
  - Gingival bleeding [Unknown]
  - Sciatica [Unknown]
  - Faeces discoloured [Unknown]
  - Depression [Unknown]
  - Nocturia [Unknown]
  - Postural tremor [Unknown]
  - Lhermitte^s sign [Unknown]
  - Nervousness [Unknown]
  - Blindness unilateral [Unknown]
  - Abdominal discomfort [Unknown]
  - Dry mouth [Unknown]
  - Pruritus [Unknown]
  - Restless legs syndrome [Unknown]
  - Back pain [Unknown]
  - Hypertonia [Unknown]
  - Dysphonia [Unknown]
  - Migraine with aura [Unknown]
  - Productive cough [Unknown]
  - Micturition urgency [Unknown]

NARRATIVE: CASE EVENT DATE: 20160906
